FAERS Safety Report 17216160 (Version 1)
Quarter: 2019Q4

REPORT INFORMATION
  Report Type: Spontaneous
  Country: JP (occurrence: JP)
  Receive Date: 20191230
  Receipt Date: 20191230
  Transmission Date: 20200122
  Serious: Yes (Other)
  Sender: FDA-Public Use
  Company Number: JP-PFIZER INC-2019553614

PATIENT
  Age: 61 Year
  Sex: Female

DRUGS (2)
  1. LYRICA [Suspect]
     Active Substance: PREGABALIN
     Indication: RADICULOPATHY
     Dosage: 50 MG, DAILY
     Route: 048
     Dates: start: 20191116, end: 20191211
  2. LYRICA [Suspect]
     Active Substance: PREGABALIN
     Indication: HYPOAESTHESIA

REACTIONS (2)
  - Hepatic function abnormal [Not Recovered/Not Resolved]
  - Cytomegalovirus infection [Unknown]

NARRATIVE: CASE EVENT DATE: 20191211
